FAERS Safety Report 9259196 (Version 1)
Quarter: 2013Q2

REPORT INFORMATION
  Report Type: Spontaneous
  Country: US (occurrence: US)
  Receive Date: 20130426
  Receipt Date: 20130426
  Transmission Date: 20140414
  Serious: Yes (Other)
  Sender: FDA-Public Use
  Company Number: US-ASTRAZENECA-2013SE27115

PATIENT
  Age: 57 Year
  Sex: Female
  Weight: 54 kg

DRUGS (5)
  1. SEROQUEL [Suspect]
     Indication: BIPOLAR DISORDER
     Route: 048
     Dates: start: 2012
  2. LORAZAPAM [Concomitant]
     Indication: TREMOR
  3. DEPAKOTE [Concomitant]
  4. DEPAKOTE [Concomitant]
  5. VICODIN [Concomitant]
     Indication: ARTHRALGIA

REACTIONS (1)
  - Bone marrow failure [Unknown]
